FAERS Safety Report 12821922 (Version 7)
Quarter: 2016Q4

REPORT INFORMATION
  Report Type: Report from Study
  Country: None (occurrence: ES)
  Receive Date: 20161006
  Receipt Date: 20161102
  Transmission Date: 20170207
  Serious: Yes (Other)
  Sender: FDA-Public Use
  Company Number: ES-ABBVIE-16K-144-1733088-00

PATIENT
  Age: 67 Year
  Sex: Male
  Weight: 92 kg

DRUGS (2)
  1. DUODOPA [Suspect]
     Active Substance: CARBIDOPA\LEVODOPA
     Route: 050
     Dates: start: 20161024
  2. DUODOPA [Suspect]
     Active Substance: CARBIDOPA\LEVODOPA
     Indication: PARKINSON^S DISEASE
     Dosage: MORNING DOSE: 20 ML, CONTINOUS DOSE: 4.5 ML/H, EXTRA DOSE: 2 ML
     Route: 050
     Dates: start: 201606, end: 20160925

REACTIONS (12)
  - Weight decreased [Not Recovered/Not Resolved]
  - Iron deficiency [Recovered/Resolved]
  - Folate deficiency [Recovered/Resolved]
  - Urinary tract infection [Recovering/Resolving]
  - On and off phenomenon [Recovered/Resolved]
  - On and off phenomenon [Not Recovered/Not Resolved]
  - Anaemia [Recovering/Resolving]
  - Vitamin B12 deficiency [Recovered/Resolved]
  - Urinary tract infection [Recovered/Resolved]
  - Decreased appetite [Recovered/Resolved]
  - Dysgeusia [Recovered/Resolved]
  - Dysgeusia [Recovered/Resolved]

NARRATIVE: CASE EVENT DATE: 201609
